FAERS Safety Report 5616152-1 (Version None)
Quarter: 2008Q1

REPORT INFORMATION
  Report Type: 
  Country: None (occurrence: None)
  Receive Date: 20080206
  Receipt Date: 20080125
  Transmission Date: 20080703
  Serious: Yes (Other)
  Sender: FDA-Public Use
  Company Number: FR-PFIZER INC-2008009823

PATIENT
  Age: 24 Year
  Sex: Female

DRUGS (3)
  1. CHANTIX [Suspect]
     Indication: SMOKING CESSATION THERAPY
     Dates: start: 20071001, end: 20071230
  2. ACETYLSALICYLATE LYSINE [Concomitant]
  3. CONTRACEPTIVE, UNSPECIFIED [Concomitant]

REACTIONS (4)
  - ABNORMAL BEHAVIOUR [None]
  - FOOT FRACTURE [None]
  - NERVOUSNESS [None]
  - OBSESSIVE-COMPULSIVE DISORDER [None]
